FAERS Safety Report 6560937 (Version 3)
Quarter: 2019Q1

REPORT INFORMATION
  Report Type: Report from Study
  Country: US (occurrence: US)
  Receive Date: 20080225
  Receipt Date: 20190131
  Transmission Date: 20190418
  Serious: Yes (Other)
  Sender: FDA-Public Use
  Company Number: US-PFIZER INC-2008013961

PATIENT
  Age: 28 Year
  Sex: Male

DRUGS (3)
  1. SERTRALINE HCL [Suspect]
     Active Substance: SERTRALINE HYDROCHLORIDE
     Indication: DEPRESSION
     Dosage: 100 MG, 1X/DAY
     Dates: end: 200412
  2. VENLAFAXINE HCL [Suspect]
     Active Substance: VENLAFAXINE HYDROCHLORIDE
     Indication: DEPRESSION
     Dosage: 150 MG, 1X/DAY
     Dates: end: 200412
  3. PAROXETINE. [Suspect]
     Active Substance: PAROXETINE
     Indication: DEPRESSION
     Dosage: 40 MG, 1X/DAY
     Dates: end: 200412

REACTIONS (6)
  - Premature ejaculation [Not Recovered/Not Resolved]
  - Ejaculation disorder [Unknown]
  - Anorgasmia [Not Recovered/Not Resolved]
  - Erectile dysfunction [Recovered/Resolved]
  - Sexual dysfunction [Not Recovered/Not Resolved]
  - Drug ineffective [Unknown]
